FAERS Safety Report 13447216 (Version 3)
Quarter: 2017Q2

REPORT INFORMATION
  Report Type: Report from Study
  Country: FR (occurrence: FR)
  Receive Date: 20170417
  Receipt Date: 20170514
  Transmission Date: 20170830
  Serious: Yes (Other)
  Sender: FDA-Public Use
  Company Number: PHHY2016FR135736

PATIENT
  Age: 61 Year
  Sex: Female

DRUGS (2)
  1. AFINITOR [Suspect]
     Active Substance: EVEROLIMUS
     Indication: BREAST CANCER
     Dosage: 10 MG, QD
     Route: 065
     Dates: start: 20150907
  2. EXEMESTANE. [Concomitant]
     Active Substance: EXEMESTANE
     Indication: PRODUCT USED FOR UNKNOWN INDICATION
     Dosage: 25 MG, QD
     Route: 065
     Dates: start: 20150907

REACTIONS (8)
  - Breast cancer [Recovering/Resolving]
  - Face oedema [Recovered/Resolved]
  - Malignant neoplasm progression [Recovering/Resolving]
  - Type I hypersensitivity [Unknown]
  - Rash [Not Recovered/Not Resolved]
  - Dyslipidaemia [Not Recovered/Not Resolved]
  - Skin oedema [Recovered/Resolved]
  - Cutaneous symptom [Unknown]

NARRATIVE: CASE EVENT DATE: 20150915
